FAERS Safety Report 13329465 (Version 1)
Quarter: 2017Q1

REPORT INFORMATION
  Report Type: Spontaneous
  Country: US (occurrence: US)
  Receive Date: 20170313
  Receipt Date: 20170313
  Transmission Date: 20170428
  Serious: No
  Sender: FDA-Public Use
  Company Number: US-WEST-WARD PHARMACEUTICALS CORP.-US-H14001-16-01076

PATIENT
  Sex: Female

DRUGS (2)
  1. EQUATE OMEPRAZOLE [Concomitant]
     Active Substance: OMEPRAZOLE
     Indication: DYSPEPSIA
     Route: 065
  2. MORPHINE [Suspect]
     Active Substance: MORPHINE
     Indication: PAIN
     Route: 065
     Dates: start: 201405, end: 201405

REACTIONS (1)
  - Mental disorder [Recovered/Resolved]

NARRATIVE: CASE EVENT DATE: 201405
